FAERS Safety Report 5692412-3 (Version None)
Quarter: 2008Q2

REPORT INFORMATION
  Report Type: 
  Country: None (occurrence: None)
  Receive Date: 20080402
  Receipt Date: 20070511
  Transmission Date: 20081010
  Serious: No
  Sender: FDA-Public Use
  Company Number: US-BAYER-US-2007-017214

PATIENT
  Age: 61 Year
  Sex: Female
  Weight: 62 kg

DRUGS (3)
  1. LEUKINE [Suspect]
     Indication: ACUTE MYELOID LEUKAEMIA
     Route: 058
     Dates: start: 20070509
  2. ETOPOSIDE [Concomitant]
     Indication: ACUTE MYELOID LEUKAEMIA
     Dates: start: 20070101, end: 20070101
  3. MITOXANTRONE [Concomitant]
     Indication: ACUTE MYELOID LEUKAEMIA
     Dates: start: 20070101, end: 20070101

REACTIONS (1)
  - DYSPEPSIA [None]
